FAERS Safety Report 9772246 (Version 1)
Quarter: 2013Q4

REPORT INFORMATION
  Report Type: Spontaneous
  Country: US (occurrence: None)
  Receive Date: 20131218
  Receipt Date: 20131218
  Transmission Date: 20140711
  Serious: Yes (Death)
  Sender: FDA-Public Use
  Company Number: None

PATIENT
  Age: 76 Year
  Sex: Female
  Weight: 69.85 kg

DRUGS (7)
  1. ONDANSETRON INJECTION [Suspect]
     Indication: BACK PAIN
     Route: 042
     Dates: start: 20131116
  2. MORPHINE SULFATE INJECTION [Suspect]
     Indication: BACK PAIN
     Route: 042
     Dates: start: 20131116
  3. HUMULIN [Concomitant]
  4. JANUVIA [Concomitant]
  5. LEVOXYL [Concomitant]
  6. VICODIN [Concomitant]
  7. VIT D2 [Concomitant]

REACTIONS (2)
  - Unresponsive to stimuli [None]
  - Somnolence [None]
